FAERS Safety Report 6149590-1 (Version None)
Quarter: 2009Q2

REPORT INFORMATION
  Report Type: 
  Country: None (occurrence: None)
  Receive Date: 20090406
  Receipt Date: 20090406
  Transmission Date: 20091009
  Serious: Yes (Hospitalization)
  Sender: FDA-Public Use
  Company Number: None

PATIENT
  Age: 81 Year
  Sex: Male
  Weight: 94.5 kg

DRUGS (1)
  1. AMIODARONE HCL [Suspect]
     Dosage: 200 MG BID PO
     Route: 048

REACTIONS (3)
  - DIFFUSE ALVEOLAR DAMAGE [None]
  - PNEUMONITIS [None]
  - THERAPEUTIC AGENT TOXICITY [None]
